FAERS Safety Report 6920415-7 (Version None)
Quarter: 2010Q3

REPORT INFORMATION
  Report Type: 
  Country: None (occurrence: None)
  Receive Date: 20100812
  Receipt Date: 20100803
  Transmission Date: 20110219
  Serious: Yes (Other)
  Sender: FDA-Public Use
  Company Number: US-BIOGENIDEC-2010BI026813

PATIENT
  Age: 43 Year
  Sex: Male

DRUGS (3)
  1. TYSABRI [Suspect]
     Indication: MULTIPLE SCLEROSIS
     Route: 042
     Dates: start: 20100506
  2. KEPPRA [Concomitant]
     Indication: CONVULSION
  3. VIMPAT [Concomitant]
     Indication: CONVULSION

REACTIONS (1)
  - CONVULSION [None]
